FAERS Safety Report 8811666 (Version 1)
Quarter: 2012Q4

REPORT INFORMATION
  Report Type: 
  Country: US (occurrence: US)
  Receive Date: 20120927
  Receipt Date: 20120927
  Transmission Date: 20130627
  Serious: Yes (Hospitalization)
  Sender: FDA-Public Use
  Company Number: US-MUTUAL PHARMACEUTICAL COMPANY, INC.-BCTM20120006

PATIENT
  Age: 37 Year
  Sex: Female

DRUGS (2)
  1. BACTRIM DS TABLETS [Suspect]
     Indication: DRUG USE FOR UNKNOWN INDICATION
     Route: 048
  2. CLOZAPINE [Suspect]
     Indication: BIPOLAR DISORDER
     Route: 048
     Dates: end: 201201

REACTIONS (4)
  - White blood cell count decreased [Recovered/Resolved]
  - Drug hypersensitivity [None]
  - Pruritus [Unknown]
  - Swelling face [Unknown]
